FAERS Safety Report 4616546-7 (Version None)
Quarter: 2005Q1

REPORT INFORMATION
  Report Type: 
  Country: None (occurrence: None)
  Receive Date: 20050318
  Receipt Date: 20050309
  Transmission Date: 20050727
  Serious: Yes (Hospitalization, Other)
  Sender: FDA-Public Use
  Company Number: 2005-03-0606

PATIENT
  Age: 40 Year
  Sex: Female

DRUGS (1)
  1. INTRON A [Suspect]
     Indication: MALIGNANT MELANOMA STAGE III
     Dates: end: 20040101

REACTIONS (5)
  - DEHYDRATION [None]
  - FEELING ABNORMAL [None]
  - NEUROTOXICITY [None]
  - ORAL INTAKE REDUCED [None]
  - SPEECH DISORDER [None]
